FAERS Safety Report 8901222 (Version 4)
Quarter: 2013Q3

REPORT INFORMATION
  Report Type: Report from Study
  Country: JP (occurrence: JP)
  Receive Date: 20121109
  Receipt Date: 20130904
  Transmission Date: 20140515
  Serious: Yes (Hospitalization, Other)
  Sender: FDA-Public Use
  Company Number: JP-VERTEX PHARMACEUTICAL INC.-AE-2012-009794

PATIENT
  Age: 64 Year
  Sex: Male

DRUGS (14)
  1. VX-950 (TELAPREVIR) [Suspect]
     Indication: CHRONIC HEPATITIS C
     Dosage: 2250 MG, QD
     Route: 048
     Dates: start: 20120508, end: 20120529
  2. VX-950 (TELAPREVIR) [Suspect]
     Dosage: 1500 MG, QD
     Route: 048
     Dates: start: 20120605, end: 20120813
  3. PEGINTRON [Suspect]
     Indication: CHRONIC HEPATITIS C
     Dosage: 1.5 ?G/KG, QW
     Route: 058
     Dates: start: 20120508, end: 20121029
  4. REBETOL [Suspect]
     Indication: CHRONIC HEPATITIS C
     Dosage: 800 MG, QD
     Route: 048
     Dates: start: 20120508, end: 20120517
  5. REBETOL [Suspect]
     Dosage: 600 MG, QD
     Route: 048
     Dates: start: 20120518, end: 20120529
  6. REBETOL [Suspect]
     Dosage: 400 MG, QD
     Route: 048
     Dates: start: 20120605, end: 20120610
  7. REBETOL [Suspect]
     Dosage: 200 MG, QD
     Route: 048
     Dates: start: 20120611, end: 20121105
  8. HARNAL D [Concomitant]
     Dosage: 0.2 MG, QD
     Route: 048
  9. DOGMATYL [Concomitant]
     Dosage: 50 MG, QD
     Route: 048
  10. PARKINES [Concomitant]
     Dosage: 2 MG, QD
     Route: 048
  11. ARTANE [Concomitant]
     Dosage: 2 MG, QD
     Route: 048
  12. ARTANE [Concomitant]
     Dosage: 4 MG, QD
     Route: 048
  13. URSO [Concomitant]
     Dosage: 600 MG, QD
     Route: 048
  14. TALION [Concomitant]
     Dosage: 20 MG, QD
     Route: 048
     Dates: end: 20121105

REACTIONS (3)
  - White blood cell count decreased [Recovered/Resolved]
  - Decreased appetite [Recovered/Resolved]
  - Malaise [Recovered/Resolved]
